FAERS Safety Report 12873291 (Version 3)
Quarter: 2016Q4

REPORT INFORMATION
  Report Type: Spontaneous
  Country: DE (occurrence: DE)
  Receive Date: 20161021
  Receipt Date: 20161108
  Transmission Date: 20170207
  Serious: Yes (Life-Threatening, Hospitalization, Disabling, Other)
  Sender: FDA-Public Use
  Company Number: DE-BAYER-2016-202468

PATIENT
  Age: 76 Year
  Sex: Male

DRUGS (3)
  1. XARELTO [Suspect]
     Active Substance: RIVAROXABAN
     Indication: ATRIAL FIBRILLATION
     Dosage: 20 MG, OM
     Dates: start: 20160403
  2. ACETYLSALICYLIC ACID({=100 MG) [Suspect]
     Active Substance: ASPIRIN
     Dosage: UNK
  3. ASPIRIN. [Suspect]
     Active Substance: ASPIRIN

REACTIONS (5)
  - Hemiparesis [None]
  - Hemiplegia [None]
  - Dysarthria [None]
  - Dysphagia [None]
  - Cerebral infarction [None]

NARRATIVE: CASE EVENT DATE: 20160404
